FAERS Safety Report 8233320-3 (Version None)
Quarter: 2012Q1

REPORT INFORMATION
  Report Type: 
  Country: None (occurrence: None)
  Receive Date: 20120323
  Receipt Date: 20120323
  Transmission Date: 20120608
  Serious: No
  Sender: FDA-Public Use
  Company Number: None

PATIENT
  Age: 59 Year
  Sex: Male
  Weight: 74.6 kg

DRUGS (1)
  1. CEPHALEXIN [Suspect]
     Indication: UPPER RESPIRATORY TRACT INFECTION
     Dosage: 500 MG QID PO
     Route: 048
     Dates: start: 20120115, end: 20120116

REACTIONS (2)
  - ANGIOEDEMA [None]
  - ANAPHYLACTIC REACTION [None]
